FAERS Safety Report 4267111-5 (Version None)
Quarter: 2004Q1

REPORT INFORMATION
  Report Type: 
  Country: None (occurrence: None)
  Receive Date: 20040107
  Receipt Date: 20031222
  Transmission Date: 20041129
  Serious: Yes (Hospitalization)
  Sender: FDA-Public Use
  Company Number: F01200300671

PATIENT
  Age: 86 Year
  Sex: Male

DRUGS (12)
  1. ARIXTRA [Suspect]
     Indication: THROMBOSIS PROPHYLAXIS
     Dosage: 2.5 MG
     Route: 058
     Dates: start: 20030610, end: 20030615
  2. NIFEDIPINE [Concomitant]
  3. ATENOLOL [Concomitant]
  4. TRIAMTERAN (HYDROCHLOROTHIAZIDE/TRIAMTERENE) [Concomitant]
  5. ASPIRIN [Concomitant]
  6. TIMOPTIC [Concomitant]
  7. PREDNISONE [Concomitant]
  8. NITRO PATCH (GLYCERYL TRINITRATE) [Concomitant]
  9. MICARDIS [Concomitant]
  10. LIPITOR [Concomitant]
  11. PRILOSEC [Concomitant]
  12. BEXTRA [Concomitant]

REACTIONS (10)
  - ACUTE RESPIRATORY DISTRESS SYNDROME [None]
  - DEPRESSED LEVEL OF CONSCIOUSNESS [None]
  - GENERALISED OEDEMA [None]
  - HAEMATOCRIT DECREASED [None]
  - HAEMOGLOBIN DECREASED [None]
  - PSEUDOMONAL SEPSIS [None]
  - RED BLOOD CELL COUNT DECREASED [None]
  - RENAL FAILURE [None]
  - STAPHYLOCOCCAL BACTERAEMIA [None]
  - WOUND INFECTION [None]
